FAERS Safety Report 16515909 (Version 1)
Quarter: 2019Q3

REPORT INFORMATION
  Report Type: Spontaneous
  Country: US (occurrence: US)
  Receive Date: 20190702
  Receipt Date: 20190702
  Transmission Date: 20191004
  Serious: No
  Sender: FDA-Public Use
  Company Number: US-PFIZER INC-2019273476

PATIENT
  Age: 72 Year
  Sex: Female
  Weight: 51.26 kg

DRUGS (5)
  1. DICLOFENAC [Concomitant]
     Active Substance: DICLOFENAC
     Indication: PAIN
     Dosage: 0.5 G, AS NEEDED (0.5 GRAMS SIZE OF A PEA USE AS NEED TO AFFECTED AREA)
     Route: 061
     Dates: start: 2018
  2. ADVIL [Suspect]
     Active Substance: IBUPROFEN
     Indication: PAIN
     Dosage: 200 MG, AS NEEDED (200 MG TAKE 1 TABLET AS NEEDED )
     Dates: start: 201711
  3. TYLENOL [Concomitant]
     Active Substance: ACETAMINOPHEN
     Indication: PAIN
     Dosage: UNK, AS NEEDED (200 MG UP TO 525 MG, 1 -2 AS NEEDED)
  4. LIDOCAINE. [Concomitant]
     Active Substance: LIDOCAINE
     Dosage: UNK
  5. PEPCID [Concomitant]
     Active Substance: FAMOTIDINE
     Indication: GASTROOESOPHAGEAL REFLUX DISEASE
     Dosage: 20 MG, AS NEEDED (TAKE ONE TABLET AS NEEDED. MAX 2 A DAY)
     Dates: start: 20190619

REACTIONS (5)
  - Abdominal discomfort [Unknown]
  - Accident [Unknown]
  - Weight decreased [Recovered/Resolved]
  - Body height decreased [Unknown]
  - Injury [Unknown]

NARRATIVE: CASE EVENT DATE: 201712
